FAERS Safety Report 24546472 (Version 2)
Quarter: 2024Q4

REPORT INFORMATION
  Report Type: Spontaneous
  Country: ES (occurrence: ES)
  Receive Date: 20241024
  Receipt Date: 20241216
  Transmission Date: 20250114
  Serious: Yes (Hospitalization)
  Sender: PFIZER
  Company Number: ES-ROCHE-10000090205

PATIENT
  Age: 59 Year
  Sex: Male
  Weight: 50.2 kg

DRUGS (34)
  1. DOXORUBICIN HYDROCHLORIDE [Suspect]
     Active Substance: DOXORUBICIN HYDROCHLORIDE
     Indication: Diffuse large B-cell lymphoma
     Dosage: 81 MG, EVERY 3 WEEKS
     Route: 042
     Dates: start: 20240725
  2. DOXORUBICIN HYDROCHLORIDE [Suspect]
     Active Substance: DOXORUBICIN HYDROCHLORIDE
     Dosage: 77 MG, EVERY 3 WEEKS
     Route: 042
     Dates: start: 20240912
  3. CYCLOPHOSPHAMIDE [Suspect]
     Active Substance: CYCLOPHOSPHAMIDE
     Indication: Diffuse large B-cell lymphoma
     Dosage: 1215 MG, EVERY 3 WEEKS
     Route: 042
     Dates: start: 20240725
  4. CYCLOPHOSPHAMIDE [Suspect]
     Active Substance: CYCLOPHOSPHAMIDE
     Dosage: 1155 MG, EVERY 3 WEEKS; LAST DOSE OF STUDY DRUG PRIOR TO SAE WAS ON 12SEP2024
     Route: 042
     Dates: start: 20240912
  5. PREDNISONE [Suspect]
     Active Substance: PREDNISONE
     Indication: Diffuse large B-cell lymphoma
     Dosage: 100 MG, EVERY 3 WEEKS; LAST DOSE OF STUDY DRUG PRIOR TO SAE WAS ADMINISTERED ON 16SEP2024
     Route: 048
     Dates: start: 20240724
  6. GLOFITAMAB [Suspect]
     Active Substance: GLOFITAMAB
     Indication: Diffuse large B-cell lymphoma
     Dosage: 2.5 MG, EVERY 3 WEEKS
     Route: 042
     Dates: start: 20240820
  7. GLOFITAMAB [Suspect]
     Active Substance: GLOFITAMAB
     Dosage: 3 MG, EVERY 3 WEEKS; LAST DOSE OF STUDY DRUG PRIOR TO SAE WAS ADMINISTERED ON 19SEP2024
     Route: 042
     Dates: start: 20240919
  8. POLATUZUMAB VEDOTIN [Concomitant]
     Active Substance: POLATUZUMAB VEDOTIN
     Indication: Diffuse large B-cell lymphoma
     Dosage: 103 MG, EVERY 3 WEEKS
     Route: 042
     Dates: start: 20240725
  9. POLATUZUMAB VEDOTIN [Concomitant]
     Active Substance: POLATUZUMAB VEDOTIN
     Dosage: 90 MG, EVERY 3 WEEKS; LAST DOSE OF STUDY DRUG PRIOR TO SAE WAS ADMINISTERED ON 12SEP2024
     Route: 042
     Dates: start: 20240912
  10. RITUXIMAB [Concomitant]
     Active Substance: RITUXIMAB
     Indication: Diffuse large B-cell lymphoma
     Dosage: 609 MG, EVERY 3 WEEKS
     Route: 042
     Dates: start: 20240724
  11. RITUXIMAB [Concomitant]
     Active Substance: RITUXIMAB
     Dosage: 577 MG, EVERY 3 WEEKS; LAST DOSE OF STUDY DRUG PRIOR TO SAE WAS ON 12SEP2024
     Route: 042
     Dates: start: 20240912
  12. ENALAPRIL [Concomitant]
     Active Substance: ENALAPRIL
     Indication: Hypertension
     Dosage: 10 MG, 1X/DAY
     Route: 048
  13. ESOMEPRAZOLE [Concomitant]
     Active Substance: ESOMEPRAZOLE
     Indication: Prophylaxis
     Dosage: 20 MG, 1X/DAY (GIVEN FOR PROPHYLAXIS IS YES)
     Route: 048
  14. ONDANSETRON [Concomitant]
     Active Substance: ONDANSETRON
     Indication: Nausea
     Dosage: 8 MG (FREQ:.5 D;)
     Route: 048
     Dates: start: 20240813
  15. ONDANSETRON [Concomitant]
     Active Substance: ONDANSETRON
     Indication: Prophylaxis
     Dosage: 8 MG, SINGLE (GIVEN FOR PROPHYLAXIS IS YES)
     Route: 042
     Dates: start: 20240912, end: 20240912
  16. CINITAPRIDE [Concomitant]
     Active Substance: CINITAPRIDE
     Indication: Nausea
     Dosage: 1 MG, AS NEEDED
     Route: 048
     Dates: start: 20240816
  17. CEFEPIME [Concomitant]
     Active Substance: CEFEPIME HYDROCHLORIDE
     Indication: Pyrexia
     Dosage: 2 MG, 1X/DAY (GIVEN FOR PROPHYLAXIS IS YES)
     Route: 058
     Dates: start: 20240831, end: 20240831
  18. CEFEPIME [Concomitant]
     Active Substance: CEFEPIME HYDROCHLORIDE
     Indication: Prophylaxis
  19. DEXAMETHASONE [Concomitant]
     Active Substance: DEXAMETHASONE
     Indication: Cytokine release syndrome
     Dosage: 20 MG, SINGLE
     Route: 042
     Dates: start: 20240829, end: 20240829
  20. DEXAMETHASONE [Concomitant]
     Active Substance: DEXAMETHASONE
     Dosage: 10 MG (FREQ:.25 D;)
     Route: 042
     Dates: start: 20240831, end: 20240831
  21. DEXAMETHASONE [Concomitant]
     Active Substance: DEXAMETHASONE
     Dosage: 10 MG (FREQ:.33 D;)
     Route: 042
     Dates: start: 20240901
  22. REMDESIVIR [Concomitant]
     Active Substance: REMDESIVIR
     Indication: COVID-19
     Dosage: 200 MG, 1X/DAY
     Route: 042
     Dates: start: 20240905, end: 20240905
  23. REMDESIVIR [Concomitant]
     Active Substance: REMDESIVIR
     Dosage: 100 MG, 1X/DAY
     Route: 042
     Dates: start: 20240906, end: 20240909
  24. DEXCHLORPHENIRAMINE [Concomitant]
     Active Substance: DEXCHLORPHENIRAMINE
     Dosage: 5 MG, SINGLE
     Route: 042
     Dates: start: 20240829, end: 20240829
  25. ACETAMINOPHEN [Concomitant]
     Active Substance: ACETAMINOPHEN
     Indication: Pyrexia
     Dosage: 500 MG, SINGLE
     Route: 048
     Dates: start: 20240829, end: 20240829
  26. ACETAMINOPHEN [Concomitant]
     Active Substance: ACETAMINOPHEN
     Dosage: 500 MG, SINGLE
     Route: 048
     Dates: start: 20240912, end: 20240912
  27. ACETAMINOPHEN [Concomitant]
     Active Substance: ACETAMINOPHEN
     Dosage: 1 G, 1X/DAY
     Route: 042
     Dates: start: 20240917, end: 20240918
  28. ACETAMINOPHEN [Concomitant]
     Active Substance: ACETAMINOPHEN
     Dosage: 1 G, SINGLE
     Route: 042
     Dates: start: 20240921, end: 20240921
  29. DEXCHLORPHENIRAMINE MALEATE [Concomitant]
     Active Substance: DEXCHLORPHENIRAMINE MALEATE
     Dosage: 5 MG, SINGLE
     Route: 042
     Dates: start: 20240912, end: 20240912
  30. ALLOPURINOL [Concomitant]
     Active Substance: ALLOPURINOL
     Dosage: 300 MG, 1X/DAY
     Route: 048
     Dates: start: 20240724
  31. ACYCLOVIR [Concomitant]
     Active Substance: ACYCLOVIR
     Dosage: 800 MG, 1X/DAY
     Route: 048
     Dates: start: 20240812
  32. ALMAGATE [Concomitant]
     Active Substance: ALMAGATE
     Indication: Abdominal pain upper
     Dosage: UNK UNK, AS NEEDED
     Route: 048
  33. LEVOFLOXACIN [Concomitant]
     Active Substance: LEVOFLOXACIN
     Dosage: 500 MG, 1X/DAY
     Route: 042
     Dates: start: 20240831, end: 20240903
  34. SULFAMETHOXAZOLE\TRIMETHOPRIM [Concomitant]
     Active Substance: SULFAMETHOXAZOLE\TRIMETHOPRIM
     Dosage: 960 MG, 3X/DAY
     Dates: start: 20240812

REACTIONS (1)
  - Cytokine release syndrome [Recovered/Resolved]

NARRATIVE: CASE EVENT DATE: 20240921
